FAERS Safety Report 16222584 (Version 1)
Quarter: 2019Q2

REPORT INFORMATION
  Report Type: Spontaneous
  Country: US (occurrence: US)
  Receive Date: 20190419
  Receipt Date: 20190419
  Transmission Date: 20190711
  Serious: Yes (Hospitalization, Disabling)
  Sender: FDA-Public Use
  Company Number: None

PATIENT
  Sex: Male

DRUGS (19)
  1. ENBREL [Suspect]
     Active Substance: ETANERCEPT
     Dosage: ?          OTHER FREQUENCY:ONCE A WEEK;?
     Route: 058
  2. FOLIC ACID. [Concomitant]
     Active Substance: FOLIC ACID
  3. XANAX [Concomitant]
     Active Substance: ALPRAZOLAM
  4. PATIENT MED PROFILE [Concomitant]
  5. ROBAXIN [Concomitant]
     Active Substance: METHOCARBAMOL
  6. PREDNISONE INTENSOL [Concomitant]
     Active Substance: PREDNISONE
  7. BISACODYL EC [Concomitant]
     Active Substance: BISACODYL
  8. LUMIGAN [Concomitant]
     Active Substance: BIMATOPROST
  9. PATIENT MED PROFILE [Concomitant]
  10. LABETALOL HCL [Concomitant]
     Active Substance: LABETALOL HYDROCHLORIDE
  11. METHOTREXATE. [Concomitant]
     Active Substance: METHOTREXATE
  12. FOSAMAX [Concomitant]
     Active Substance: ALENDRONATE SODIUM
  13. TRAMADOL HCL [Concomitant]
     Active Substance: TRAMADOL HYDROCHLORIDE
  14. CELEXA [Concomitant]
     Active Substance: CITALOPRAM HYDROBROMIDE
  15. CARAFATE [Concomitant]
     Active Substance: SUCRALFATE
  16. CELEXA [Concomitant]
     Active Substance: CITALOPRAM HYDROBROMIDE
  17. COMBIGAN [Concomitant]
     Active Substance: BRIMONIDINE TARTRATE\TIMOLOL MALEATE
  18. GABAPENTIN. [Concomitant]
     Active Substance: GABAPENTIN
  19. NEXIUM [Concomitant]
     Active Substance: ESOMEPRAZOLE MAGNESIUM

REACTIONS (2)
  - Infection [None]
  - Amputation [None]
